FAERS Safety Report 6573988-0 (Version None)
Quarter: 2010Q1

REPORT INFORMATION
  Report Type: 
  Country: None (occurrence: None)
  Receive Date: 20100208
  Receipt Date: 20100201
  Transmission Date: 20100710
  Serious: Yes (Other)
  Sender: FDA-Public Use
  Company Number: US-JNJFOC-20100201940

PATIENT
  Sex: Male
  Weight: 83.92 kg

DRUGS (3)
  1. DURAGESIC-100 [Suspect]
     Indication: MULTIPLE SCLEROSIS
     Route: 062
  2. DURAGESIC-100 [Suspect]
     Route: 062
  3. PROVIGIL [Concomitant]
     Indication: MULTIPLE SCLEROSIS
     Route: 048

REACTIONS (4)
  - FEELING ABNORMAL [None]
  - FLUSHING [None]
  - MULTIPLE SCLEROSIS [None]
  - PRODUCT QUALITY ISSUE [None]
